FAERS Safety Report 23884087 (Version 1)
Quarter: 2024Q2

REPORT INFORMATION
  Report Type: Spontaneous
  Country: JP (occurrence: JP)
  Receive Date: 20240522
  Receipt Date: 20240522
  Transmission Date: 20240716
  Serious: Yes (Other)
  Sender: FDA-Public Use
  Company Number: JP-Eisai-202401910_LEN-EC_P_1

PATIENT
  Age: 6 Decade
  Sex: Female

DRUGS (2)
  1. LENVIMA [Suspect]
     Active Substance: LENVATINIB
     Indication: Endometrial cancer
     Route: 041
  2. KEYTRUDA [Concomitant]
     Active Substance: PEMBROLIZUMAB
     Indication: Endometrial cancer
     Route: 041

REACTIONS (5)
  - Type 1 diabetes mellitus [Unknown]
  - Pyrexia [Unknown]
  - Eczema [Unknown]
  - Diarrhoea [Unknown]
  - Hypothyroidism [Unknown]
